FAERS Safety Report 15300530 (Version 1)
Quarter: 2018Q3

REPORT INFORMATION
  Report Type: Spontaneous
  Country: US (occurrence: US)
  Receive Date: 20180808
  Receipt Date: 20180808
  Transmission Date: 20181010
  Serious: Yes (Death)
  Sender: FDA-Public Use
  Company Number: None

PATIENT
  Age: 61 Year
  Sex: Female
  Weight: 86 kg

DRUGS (2)
  1. ALBUMIN [Suspect]
     Active Substance: ALBUMIN HUMAN
     Indication: CARDIAC OPERATION
     Route: 041
     Dates: start: 20180614, end: 20180614
  2. ALBUMIN [Suspect]
     Active Substance: ALBUMIN HUMAN
     Indication: CARDIAC OPERATION
     Route: 042
     Dates: start: 20180613, end: 20180613

REACTIONS (13)
  - Klebsiella infection [None]
  - Acute allograft nephropathy [None]
  - Gastric ulcer [None]
  - Leukocytosis [None]
  - Duodenal ulcer [None]
  - Gastric haemorrhage [None]
  - Pyrexia [None]
  - Status epilepticus [None]
  - Hypotension [None]
  - Cerebral vascular occlusion [None]
  - Contrast media reaction [None]
  - Encephalopathy [None]
  - Cerebral infarction [None]

NARRATIVE: CASE EVENT DATE: 20180623
